FAERS Safety Report 9344210 (Version 1)
Quarter: 2013Q2

REPORT INFORMATION
  Report Type: Spontaneous
  Country: US (occurrence: None)
  Receive Date: 20130610
  Receipt Date: 20130610
  Transmission Date: 20140414
  Serious: Yes (Other)
  Sender: FDA-Public Use
  Company Number: 1168989

PATIENT
  Age: 17 Month
  Sex: Male
  Weight: 10.43 kg

DRUGS (1)
  1. LITTLE COLDS MULT-SYMPTOM [Suspect]

REACTIONS (3)
  - Vomiting [None]
  - Dehydration [None]
  - Viral infection [None]
